FAERS Safety Report 17392842 (Version 1)
Quarter: 2020Q1

REPORT INFORMATION
  Report Type: Spontaneous
  Country: AR (occurrence: AR)
  Receive Date: 20200207
  Receipt Date: 20200207
  Transmission Date: 20200409
  Serious: Yes (Disabling)
  Sender: FDA-Public Use
  Company Number: AR-BAYER-2020-018260

PATIENT
  Sex: Female

DRUGS (1)
  1. LEVONORGESTREL IUS [UNKNOWN] [Suspect]
     Active Substance: LEVONORGESTREL
     Dosage: UNK UNK, CONT
     Route: 015

REACTIONS (1)
  - Infertility female [Not Recovered/Not Resolved]

NARRATIVE: CASE EVENT DATE: 2019
